FAERS Safety Report 9274737 (Version 1)
Quarter: 2013Q2

REPORT INFORMATION
  Report Type: Spontaneous
  Country: US (occurrence: None)
  Receive Date: 20130430
  Receipt Date: 20130430
  Transmission Date: 20140414
  Serious: Yes (Life-Threatening, Hospitalization)
  Sender: FDA-Public Use
  Company Number: None

PATIENT
  Age: 63 Year
  Sex: Female

DRUGS (1)
  1. ISOVUE 300 [Suspect]
     Indication: SCAN WITH CONTRAST
     Dosage: OT IV
     Route: 042
     Dates: start: 20130425, end: 20130425

REACTIONS (3)
  - Dyspnoea [None]
  - Unresponsive to stimuli [None]
  - Pulse absent [None]
